FAERS Safety Report 23956963 (Version 4)
Quarter: 2024Q3

REPORT INFORMATION
  Report Type: Spontaneous
  Country: AU (occurrence: AU)
  Receive Date: 20240610
  Receipt Date: 20240816
  Transmission Date: 20241016
  Serious: No
  Sender: PFIZER
  Company Number: AU-PFIZER INC-202400172029

PATIENT
  Sex: Female

DRUGS (1)
  1. FILGRASTIM [Suspect]
     Active Substance: FILGRASTIM
     Dosage: UNK

REACTIONS (2)
  - Device issue [Unknown]
  - Device use error [Unknown]
